FAERS Safety Report 16308924 (Version 2)
Quarter: 2020Q2

REPORT INFORMATION
  Report Type: Spontaneous
  Country: US (occurrence: US)
  Receive Date: 20190514
  Receipt Date: 20200403
  Transmission Date: 20200713
  Serious: Yes (Death, Other)
  Sender: FDA-Public Use
  Company Number: US-GLAXOSMITHKLINE-US2019GSK084850

PATIENT
  Sex: Male

DRUGS (1)
  1. PREVACID [Suspect]
     Active Substance: LANSOPRAZOLE
     Indication: PRODUCT USED FOR UNKNOWN INDICATION
     Dosage: UNK
     Route: 065

REACTIONS (22)
  - Death [Fatal]
  - Haematuria [Unknown]
  - Chromaturia [Unknown]
  - Proteinuria [Unknown]
  - Stress urinary incontinence [Unknown]
  - Chronic kidney disease [Unknown]
  - Urinary hesitation [Unknown]
  - Urinary straining [Unknown]
  - Urinary incontinence [Unknown]
  - Renal failure [Unknown]
  - Nocturia [Unknown]
  - Renal mass [Unknown]
  - Dysuria [Unknown]
  - Renal impairment [Unknown]
  - Urinary retention [Unknown]
  - Diabetic nephropathy [Unknown]
  - Renal cyst [Unknown]
  - Pollakiuria [Unknown]
  - Urine flow decreased [Unknown]
  - Polyuria [Unknown]
  - Urine output decreased [Unknown]
  - Urine odour abnormal [Unknown]
